FAERS Safety Report 18569021 (Version 1)
Quarter: 2020Q4

REPORT INFORMATION
  Report Type: Spontaneous
  Country: US (occurrence: US)
  Receive Date: 20201201
  Receipt Date: 20201201
  Transmission Date: 20210114
  Serious: Yes (Disabling)
  Sender: FDA-Public Use
  Company Number: None

PATIENT
  Age: 48 Year
  Sex: Male
  Weight: 67.5 kg

DRUGS (7)
  1. CIPROFLOXACIN. [Suspect]
     Active Substance: CIPROFLOXACIN
     Indication: PROPHYLAXIS
     Dosage: ?          QUANTITY:14 TABLET(S);?
     Route: 048
     Dates: start: 20201127, end: 20201127
  2. LUNESTA [Concomitant]
     Active Substance: ESZOPICLONE
  3. GLUTATHIONE [Concomitant]
     Active Substance: GLUTATHIONE
  4. GLYCINE. [Concomitant]
     Active Substance: GLYCINE
  5. LORAZEPAM. [Concomitant]
     Active Substance: LORAZEPAM
  6. TRAMADOL. [Concomitant]
     Active Substance: TRAMADOL
  7. METHYLATED B COMPLEX [Concomitant]

REACTIONS (13)
  - Pain in extremity [None]
  - Hypoaesthesia [None]
  - Dizziness [None]
  - Myalgia [None]
  - Musculoskeletal stiffness [None]
  - Confusional state [None]
  - Insomnia [None]
  - Anxiety [None]
  - Delirium [None]
  - Palpitations [None]
  - Arthralgia [None]
  - Paraesthesia [None]
  - Syncope [None]

NARRATIVE: CASE EVENT DATE: 20201127
